FAERS Safety Report 9564808 (Version 3)
Quarter: 2014Q1

REPORT INFORMATION
  Report Type: Report from Study
  Country: ZA (occurrence: ZA)
  Receive Date: 20130930
  Receipt Date: 20140117
  Transmission Date: 20141002
  Serious: Yes (Disabling, Other)
  Sender: FDA-Public Use
  Company Number: ZA-JNJFOC-20130910406

PATIENT
  Age: 46 Year
  Sex: Female
  Weight: 86 kg

DRUGS (16)
  1. TMC207 [Suspect]
     Indication: TUBERCULOSIS
     Dosage: FOR 2 WEEKS
     Route: 048
     Dates: start: 20130618
  2. TMC207 [Suspect]
     Indication: TUBERCULOSIS
     Route: 048
     Dates: start: 2013, end: 20130918
  3. ETHAMBUTOL [Concomitant]
     Indication: TUBERCULOSIS
     Route: 048
     Dates: start: 20130618
  4. ETHIONAMIDE [Concomitant]
     Indication: TUBERCULOSIS
     Route: 048
     Dates: start: 20130328
  5. PAS [Concomitant]
     Indication: TUBERCULOSIS
     Route: 048
     Dates: start: 20130618
  6. LINEZOLID [Concomitant]
     Indication: TUBERCULOSIS
     Route: 048
     Dates: start: 20130618
  7. PYRAZINAMIDE [Concomitant]
     Indication: TUBERCULOSIS
     Route: 048
     Dates: start: 20130328
  8. KANAMYCIN [Concomitant]
     Indication: TUBERCULOSIS
     Route: 030
     Dates: start: 20130328, end: 20130611
  9. LAMIVUDINE [Concomitant]
     Indication: HIV INFECTION
     Route: 048
     Dates: start: 20130909
  10. ZIDOVUDINE [Concomitant]
     Indication: HIV INFECTION
     Route: 048
     Dates: start: 20130610
  11. NEVIRAPINE [Concomitant]
     Indication: HIV INFECTION
     Route: 048
     Dates: start: 20130610
  12. PYRIDOXINE [Concomitant]
     Indication: PROPHYLAXIS
     Route: 048
     Dates: start: 20130328
  13. TERIZIDONE [Concomitant]
     Indication: TUBERCULOSIS
     Route: 048
     Dates: start: 20130328
  14. MAXOLON [Concomitant]
     Indication: NAUSEA
     Route: 048
     Dates: start: 20130621, end: 20130713
  15. CLOTRIMAZOLE [Concomitant]
     Indication: VULVOVAGINAL CANDIDIASIS
     Route: 061
     Dates: start: 20130630, end: 20130710
  16. CALCICHEW [Concomitant]
     Indication: HYPOCALCAEMIA
     Route: 048
     Dates: start: 20131106, end: 20131202

REACTIONS (12)
  - Atrial fibrillation [Recovering/Resolving]
  - Hypothyroidism [Recovering/Resolving]
  - Nausea [Recovered/Resolved]
  - Vulvovaginal pruritus [Recovered/Resolved]
  - Diarrhoea [Not Recovered/Not Resolved]
  - Pain [Recovered/Resolved]
  - Rash [Recovered/Resolved]
  - Chest pain [Recovered/Resolved]
  - Muscle spasms [Not Recovered/Not Resolved]
  - Muscular weakness [Not Recovered/Not Resolved]
  - Hypoacusis [Not Recovered/Not Resolved]
  - Abdominal pain [Not Recovered/Not Resolved]
